FAERS Safety Report 25441961 (Version 1)
Quarter: 2025Q2

REPORT INFORMATION
  Report Type: Spontaneous
  Country: CA (occurrence: CA)
  Receive Date: 20250616
  Receipt Date: 20250616
  Transmission Date: 20250717
  Serious: Yes (Other)
  Sender: PFIZER
  Company Number: CA-PFIZER INC-202500095612

PATIENT
  Age: 73 Year
  Sex: Male
  Weight: 96.599 kg

DRUGS (2)
  1. VYNDAMAX [Suspect]
     Active Substance: TAFAMIDIS
     Indication: Cardiac amyloidosis
     Dosage: 61 MG, 1X/DAY
     Route: 048
     Dates: start: 20240728
  2. FUROSEMIDE [Concomitant]
     Active Substance: FUROSEMIDE
     Dosage: UNK, ALTERNATE DAY

REACTIONS (4)
  - Rheumatoid arthritis [Recovering/Resolving]
  - Oedema peripheral [Unknown]
  - Heart rate irregular [Unknown]
  - Dyspnoea [Unknown]
